FAERS Safety Report 4659822-4 (Version None)
Quarter: 2005Q2

REPORT INFORMATION
  Report Type: 
  Country: None (occurrence: None)
  Receive Date: 20050510
  Receipt Date: 20050502
  Transmission Date: 20051028
  Serious: Yes (Hospitalization)
  Sender: FDA-Public Use
  Company Number: 05P-163-0296012-00

PATIENT
  Age: 43 Year
  Sex: Male

DRUGS (8)
  1. HUMIRA [Suspect]
     Indication: RHEUMATOID ARTHRITIS
     Dosage: SEE IMAGE
     Route: 058
     Dates: start: 20040801, end: 20041001
  2. HUMIRA [Suspect]
     Indication: RHEUMATOID ARTHRITIS
     Dosage: SEE IMAGE
     Route: 058
     Dates: start: 20041001, end: 20050328
  3. METHOTREXATE [Concomitant]
  4. FOLIC ACID [Concomitant]
  5. LOTREL [Concomitant]
  6. FEXOFENADINE HYDROCHLORIDE [Concomitant]
  7. BUCINDOLOL HYDROCHLORIDE [Concomitant]
  8. GLUCOSAMINE [Concomitant]

REACTIONS (2)
  - HISTOPLASMOSIS [None]
  - PNEUMONITIS [None]
